FAERS Safety Report 5763272-7 (Version None)
Quarter: 2008Q2

REPORT INFORMATION
  Report Type: 
  Country: None (occurrence: None)
  Receive Date: 20080604
  Receipt Date: 20080604
  Transmission Date: 20081010
  Serious: Yes (Other)
  Sender: FDA-Public Use
  Company Number: None

PATIENT
  Age: 71 Year
  Sex: Female
  Weight: 58.0604 kg

DRUGS (1)
  1. DIGITEK 0.125MG BERTEK [Suspect]
     Indication: CARDIAC FAILURE CONGESTIVE
     Dosage: 1 DAILY PO
     Route: 048
     Dates: start: 20071001, end: 20080416

REACTIONS (3)
  - ABDOMINAL PAIN UPPER [None]
  - NAUSEA [None]
  - PAIN IN EXTREMITY [None]
